FAERS Safety Report 8177271-1 (Version None)
Quarter: 2012Q1

REPORT INFORMATION
  Report Type: 
  Country: None (occurrence: None)
  Receive Date: 20120301
  Receipt Date: 20120221
  Transmission Date: 20120608
  Serious: Yes (Hospitalization)
  Sender: FDA-Public Use
  Company Number: US-ALEXION-A201101811

PATIENT
  Sex: Male
  Weight: 72.562 kg

DRUGS (1)
  1. SOLIRIS [Suspect]
     Indication: PAROXYSMAL NOCTURNAL HAEMOGLOBINURIA
     Dosage: UNK
     Route: 042
     Dates: start: 20100910

REACTIONS (2)
  - LOWER RESPIRATORY TRACT INFECTION [None]
  - MENINGOCOCCAL BACTERAEMIA [None]
